FAERS Safety Report 11197373 (Version 2)
Quarter: 2015Q3

REPORT INFORMATION
  Report Type: Spontaneous
  Country: JP (occurrence: JP)
  Receive Date: 20150617
  Receipt Date: 20150729
  Transmission Date: 20151125
  Serious: Yes (Life-Threatening, Hospitalization, Other)
  Sender: FDA-Public Use
  Company Number: JP-BAYER-2015-327797

PATIENT
  Age: 76 Year
  Sex: Female
  Weight: 69 kg

DRUGS (1)
  1. BAYASPIRIN [Suspect]
     Active Substance: ASPIRIN
     Route: 048

REACTIONS (9)
  - Subcutaneous haematoma [None]
  - Depressed level of consciousness [Recovered/Resolved]
  - Movement disorder [Recovered/Resolved]
  - Traumatic haematoma [Recovered/Resolved]
  - Respiratory muscle weakness [Recovered/Resolved]
  - Oxygen saturation decreased [Recovered/Resolved]
  - Dyspnoea [Recovered/Resolved]
  - Anaesthesia [Recovered/Resolved]
  - Spinal epidural haematoma [Recovered/Resolved]

NARRATIVE: CASE EVENT DATE: 20140911
